FAERS Safety Report 11151024 (Version 1)
Quarter: 2015Q2

REPORT INFORMATION
  Report Type: Spontaneous
  Country: JP (occurrence: None)
  Receive Date: 20150528
  Receipt Date: 20150528
  Transmission Date: 20150821
  Serious: Yes (Other)
  Sender: FDA-Public Use
  Company Number: JP-20150093

PATIENT
  Age: 8 Decade
  Sex: Male

DRUGS (2)
  1. LIPIODOL ULTRA FLUID [Suspect]
     Active Substance: ETHIODIZED OIL
     Indication: THERAPEUTIC EMBOLISATION
     Route: 013
  2. HISTOACRYL [Concomitant]
     Active Substance: ENBUCRILATE

REACTIONS (3)
  - Splenic abscess [None]
  - Product use issue [None]
  - Splenic infarction [None]
